FAERS Safety Report 25063879 (Version 1)
Quarter: 2025Q1

REPORT INFORMATION
  Report Type: Other
  Country: US (occurrence: US)
  Receive Date: 20250311
  Receipt Date: 20250311
  Transmission Date: 20250409
  Serious: Yes (Life-Threatening, Other)
  Sender: B BRAUN
  Company Number: US-B.Braun Medical Inc.-2172677

PATIENT
  Age: 13 Year
  Weight: 45.5 kg

DRUGS (9)
  1. DEXTROSE\LIDOCAINE HYDROCHLORIDE [Suspect]
     Active Substance: DEXTROSE\LIDOCAINE HYDROCHLORIDE
     Indication: General anaesthesia
  2. DEXMEDETOMIDINE [Suspect]
     Active Substance: DEXMEDETOMIDINE
  3. SEVOFLURANE [Suspect]
     Active Substance: SEVOFLURANE
  4. ONDANSETRON [Suspect]
     Active Substance: ONDANSETRON
  5. MIDAZOLAM [Suspect]
     Active Substance: MIDAZOLAM
  6. SODIUM BICARBONATE [Suspect]
     Active Substance: SODIUM BICARBONATE
  7. GLYCOPYRROLATE [Suspect]
     Active Substance: GLYCOPYRROLATE
  8. EPINEPHRINE [Suspect]
     Active Substance: EPINEPHRINE
  9. ATROPINE [Suspect]
     Active Substance: ATROPINE

REACTIONS (3)
  - Seizure [Recovered/Resolved]
  - Condition aggravated [Recovered/Resolved]
  - Cardiac arrest [Recovered/Resolved]
